FAERS Safety Report 12530478 (Version 1)
Quarter: 2016Q3

REPORT INFORMATION
  Report Type: Spontaneous
  Country: US (occurrence: US)
  Receive Date: 20160706
  Receipt Date: 20160706
  Transmission Date: 20161109
  Serious: No
  Sender: FDA-Public Use
  Company Number: US-SHIRE-US201607178

PATIENT
  Sex: Male
  Weight: 97.51 kg

DRUGS (1)
  1. PENTASA [Suspect]
     Active Substance: MESALAMINE
     Indication: CROHN^S DISEASE
     Dosage: 2000 MG (FOUR 500 MG), 2X/DAY:BID (IN AM AND IN PM)
     Route: 048
     Dates: start: 2000

REACTIONS (4)
  - Product use issue [Not Recovered/Not Resolved]
  - Restlessness [Not Recovered/Not Resolved]
  - Ill-defined disorder [Unknown]
  - Sleep apnoea syndrome [Not Recovered/Not Resolved]

NARRATIVE: CASE EVENT DATE: 2000
